FAERS Safety Report 6465479-2 (Version None)
Quarter: 2009Q4

REPORT INFORMATION
  Report Type: 
  Country: None (occurrence: None)
  Receive Date: 20091119
  Receipt Date: 20090908
  Transmission Date: 20100525
  Serious: No
  Sender: FDA-Public Use
  Company Number: WAES 0909USA01034

PATIENT
  Age: 80 Year
  Sex: Male

DRUGS (4)
  1. JANUVIA [Suspect]
     Indication: DIABETES MELLITUS
     Dosage: 100 MG/DAILY/PO
     Route: 048
     Dates: start: 20090609, end: 20090731
  2. CITALOPRAM HYDROBROMIDE [Concomitant]
  3. PRAVASTATIN SODIUM [Concomitant]
  4. RISPERIDONE [Concomitant]

REACTIONS (2)
  - MALAISE [None]
  - VOMITING [None]
